FAERS Safety Report 7680955-2 (Version None)
Quarter: 2011Q3

REPORT INFORMATION
  Report Type: 
  Country: None (occurrence: None)
  Receive Date: 20110809
  Receipt Date: 20110526
  Transmission Date: 20111222
  Serious: Yes (Hospitalization)
  Sender: FDA-Public Use
  Company Number: 2011-010

PATIENT
  Age: 3 Year
  Sex: Male

DRUGS (3)
  1. VALPROIC ACID [Suspect]
     Indication: CONVULSION
  2. PHENOBARBTAL [Concomitant]
  3. CLONIDINE [Concomitant]

REACTIONS (4)
  - CONVULSION [None]
  - BRADYCARDIA [None]
  - DEPRESSED LEVEL OF CONSCIOUSNESS [None]
  - REFUSAL OF TREATMENT BY RELATIVE [None]
